FAERS Safety Report 14800840 (Version 6)
Quarter: 2019Q2

REPORT INFORMATION
  Report Type: Spontaneous
  Country: CA (occurrence: CA)
  Receive Date: 20180424
  Receipt Date: 20190611
  Transmission Date: 20190711
  Serious: Yes (Life-Threatening, Hospitalization, Other)
  Sender: FDA-Public Use
  Company Number: CA-PFIZER INC-2018166988

PATIENT
  Age: 60 Year
  Sex: Female

DRUGS (33)
  1. INFLECTRA [Suspect]
     Active Substance: INFLIXIMAB-DYYB
     Dosage: 500 MG, CYCLIC EVERY 6 WEEKS
     Route: 042
  2. BABY ASA [Concomitant]
     Active Substance: ASPIRIN
     Dosage: 81 MG, 2X/DAY
  3. CLOPIDOGREL [Concomitant]
     Active Substance: CLOPIDOGREL BISULFATE
     Indication: MYOCARDIAL INFARCTION
     Dosage: 75 MG, 1X/DAY
     Route: 048
     Dates: start: 201804
  4. ASPIRIN. [Concomitant]
     Active Substance: ASPIRIN
     Dosage: 1 UNK, 1X/DAY
     Route: 048
  5. NITRO [Concomitant]
     Active Substance: NITROGLYCERIN
     Dosage: UNK UNK, QWK
  6. ASA [Concomitant]
     Active Substance: ASPIRIN
     Dosage: 650 MG, TID (650 MG, TWO TABLETS THREE TIMES A DAY FOR 21 DAYS)
     Route: 048
     Dates: start: 201804
  7. INFLIXIMAB HOSPIRA [Suspect]
     Active Substance: INFLIXIMAB
     Indication: RHEUMATOID ARTHRITIS
     Dosage: 200 MG, CYCLICAL
     Route: 042
  8. INFLIXIMAB HOSPIRA [Suspect]
     Active Substance: INFLIXIMAB
     Dosage: 200 MILLIGRAM
     Route: 042
  9. RABEPRAZOLE [Concomitant]
     Active Substance: RABEPRAZOLE
     Dosage: 1 TABLET DF, 1X/DAY
     Route: 048
     Dates: start: 201804, end: 201804
  10. JAMP COLCHICINE [Concomitant]
     Dosage: 1 TABLET DF, DAILY
     Route: 048
     Dates: start: 201804, end: 201804
  11. COLCHICINE. [Concomitant]
     Active Substance: COLCHICINE
     Dosage: 1 DOSAGE FORM, QD
     Route: 048
  12. INFLECTRA [Suspect]
     Active Substance: INFLIXIMAB-DYYB
     Indication: RHEUMATOID ARTHRITIS
     Dosage: 200 MG, CYCLIC EVERY 8 WEEKS
     Route: 042
     Dates: start: 20170811, end: 20170922
  13. INFLECTRA [Suspect]
     Active Substance: INFLIXIMAB-DYYB
     Dosage: UNK
     Route: 042
     Dates: start: 20180316
  14. INFLIXIMAB HOSPIRA [Suspect]
     Active Substance: INFLIXIMAB
     Dosage: 500 MILLIGRAM
     Route: 042
  15. ATORVASTATIN [Concomitant]
     Active Substance: ATORVASTATIN
     Dosage: 40 MG, QWK
     Route: 048
     Dates: start: 201804
  16. COLCHICINE. [Concomitant]
     Active Substance: COLCHICINE
     Dosage: 0.6 MILLIGRAM, QD
     Route: 048
  17. INFLECTRA [Suspect]
     Active Substance: INFLIXIMAB-DYYB
     Dosage: 400 MG, CYCLIC EVERY 7 WEEKS
     Route: 042
     Dates: start: 20171215, end: 20180202
  18. HUMIRA [Concomitant]
     Active Substance: ADALIMUMAB
     Dosage: UNK
  19. BISOPROLOL [Concomitant]
     Active Substance: BISOPROLOL
     Indication: MYOCARDIAL INFARCTION
     Dosage: 5 MG, 1X/DAY
     Route: 048
     Dates: start: 201804
  20. ASA [Concomitant]
     Active Substance: ASPIRIN
     Dosage: 13000 MILLIGRAM, TID
     Route: 048
  21. INFLECTRA [Suspect]
     Active Substance: INFLIXIMAB-DYYB
     Dosage: 250 MG, CYCLIC EVERY 8 WEEKS
     Route: 042
     Dates: start: 20171020, end: 20171020
  22. INFLIXIMAB HOSPIRA [Suspect]
     Active Substance: INFLIXIMAB
     Dosage: 400 MILLIGRAM
     Route: 042
  23. ENBREL [Suspect]
     Active Substance: ETANERCEPT
     Dosage: UNK
  24. METFORMIN [Concomitant]
     Active Substance: METFORMIN HYDROCHLORIDE
     Dosage: 500 MG, 2X/DAY
  25. PREDNISONE. [Concomitant]
     Active Substance: PREDNISONE
     Indication: CONDITION AGGRAVATED
     Dosage: UNK
  26. NITROGLYCERIN. [Concomitant]
     Active Substance: NITROGLYCERIN
     Dosage: UNK
  27. PANTOLOC [Concomitant]
     Active Substance: PANTOPRAZOLE SODIUM
     Dosage: 40 MG, 2X/DAY
  28. ASPIRIN. [Concomitant]
     Active Substance: ASPIRIN
     Dosage: 2 (TABLETS) DF, 3X/DAY
     Route: 048
     Dates: start: 201804
  29. ASPIRIN. [Concomitant]
     Active Substance: ASPIRIN
     Dosage: 81 MG, 1X/DAY
     Dates: end: 201804
  30. METHOTREXATE SODIUM. [Suspect]
     Active Substance: METHOTREXATE SODIUM
     Dosage: 10 MG, QWK
  31. INFLIXIMAB HOSPIRA [Suspect]
     Active Substance: INFLIXIMAB
     Dosage: 250 MILLIGRAM
     Route: 042
  32. FOLIC ACID. [Concomitant]
     Active Substance: FOLIC ACID
     Dosage: 5 MG , BID EXCEPT ON METHOTREXATE DAY
  33. ASA [Concomitant]
     Active Substance: ASPIRIN
     Dosage: 81 MG, BID
     Route: 065
     Dates: start: 201804

REACTIONS (3)
  - Drug hypersensitivity [Recovering/Resolving]
  - Malaise [Recovering/Resolving]
  - Myocardial infarction [Recovering/Resolving]

NARRATIVE: CASE EVENT DATE: 20180403
